FAERS Safety Report 15203078 (Version 1)
Quarter: 2018Q3

REPORT INFORMATION
  Report Type: Spontaneous
  Country: JP (occurrence: JP)
  Receive Date: 20180726
  Receipt Date: 20180726
  Transmission Date: 20181010
  Serious: Yes (Death, Other)
  Sender: FDA-Public Use
  Company Number: PHJP2018JP004320

PATIENT
  Age: 3 Year

DRUGS (2)
  1. JAKAVI TABLETS [Suspect]
     Active Substance: RUXOLITINIB
     Indication: MYELOFIBROSIS
     Dosage: 40 MG, QD
     Route: 048
     Dates: start: 201802
  2. JADENU [Suspect]
     Active Substance: DEFERASIROX
     Indication: MYELOFIBROSIS
     Dosage: UNK
     Route: 048
     Dates: start: 201805

REACTIONS (5)
  - Leukaemia [Unknown]
  - Lung infection [Fatal]
  - Malignant neoplasm progression [Unknown]
  - Product use issue [Unknown]
  - Leukaemic infiltration pulmonary [Unknown]

NARRATIVE: CASE EVENT DATE: 201805
